FAERS Safety Report 9160729 (Version 1)
Quarter: 2013Q1

REPORT INFORMATION
  Report Type: Spontaneous
  Country: DK (occurrence: None)
  Receive Date: 20130219
  Receipt Date: 20130219
  Transmission Date: 20140127
  Serious: Yes (Hospitalization)
  Sender: FDA-Public Use
  Company Number: 2013MA001071

PATIENT
  Age: 45 Year
  Sex: Female

DRUGS (1)
  1. TRAMADOL HYDROCHLORIDE TABLETS, 50 MG (PUREPAC) (TRAMADOL) [Suspect]
     Indication: NECK PAIN
     Dosage: 100 MG; ; UNK
     Dates: end: 20121215

REACTIONS (3)
  - Hallucination [None]
  - Visual impairment [None]
  - Overdose [None]
